FAERS Safety Report 12695710 (Version 2)
Quarter: 2016Q4

REPORT INFORMATION
  Report Type: Spontaneous
  Country: JP (occurrence: JP)
  Receive Date: 20160829
  Receipt Date: 20161005
  Transmission Date: 20170207
  Serious: Yes (Hospitalization, Other)
  Sender: FDA-Public Use
  Company Number: JP-MYLANLABS-2016M1035554

PATIENT

DRUGS (2)
  1. METHOTREXATE. [Suspect]
     Active Substance: METHOTREXATE
     Indication: RHEUMATOID ARTHRITIS
     Dosage: 10 MG, BIWEEKLY
     Route: 065
  2. PREDNISOLONE. [Suspect]
     Active Substance: PREDNISOLONE
     Indication: RHEUMATOID ARTHRITIS
     Dosage: 2 MG, QD
     Route: 048

REACTIONS (4)
  - Skin ulcer [Recovering/Resolving]
  - Epstein-Barr virus infection [Recovering/Resolving]
  - Herpes zoster [Recovering/Resolving]
  - Purulent synovitis [Recovering/Resolving]

NARRATIVE: CASE EVENT DATE: 201401
